FAERS Safety Report 5039074-6 (Version None)
Quarter: 2006Q2

REPORT INFORMATION
  Report Type: 
  Country: None (occurrence: None)
  Receive Date: 20060601
  Receipt Date: 20060107
  Transmission Date: 20061013
  Serious: No
  Sender: FDA-Public Use
  Company Number: 2005PV002329

PATIENT
  Age: 60 Year
  Sex: Female
  Weight: 78.9259 kg

DRUGS (17)
  1. BYETTA [Suspect]
     Indication: DIABETES MELLITUS NON-INSULIN-DEPENDENT
     Dosage: SEE IMAGE
     Route: 058
     Dates: start: 20050906, end: 20051005
  2. BYETTA [Suspect]
     Indication: DIABETES MELLITUS NON-INSULIN-DEPENDENT
     Dosage: SEE IMAGE
     Route: 058
     Dates: start: 20051006
  3. ASPIRIN [Concomitant]
  4. LANOXIN [Concomitant]
  5. IMDUR [Concomitant]
  6. PROPRANOLOL [Concomitant]
  7. ENALAPRIL MALEATE [Concomitant]
  8. STARLIX [Concomitant]
  9. GLUCOPHAGE [Concomitant]
  10. PREMARIN [Concomitant]
  11. MECLIZINE [Concomitant]
  12. LIPITOR [Concomitant]
  13. DITROPAN [Concomitant]
  14. NEURONTIN [Concomitant]
  15. PROZAC [Concomitant]
  16. SEROQUEL [Concomitant]
  17. LASIX [Concomitant]

REACTIONS (8)
  - ABDOMINAL PAIN [None]
  - DIARRHOEA [None]
  - GASTROENTERITIS VIRAL [None]
  - INJECTION SITE HAEMORRHAGE [None]
  - INJECTION SITE PAIN [None]
  - NAUSEA [None]
  - VOMITING [None]
  - WEIGHT DECREASED [None]
